FAERS Safety Report 8858671 (Version 2)
Quarter: 2013Q2

REPORT INFORMATION
  Report Type: Spontaneous
  Country: US (occurrence: US)
  Receive Date: 20121024
  Receipt Date: 20130412
  Transmission Date: 20140414
  Serious: Yes (Hospitalization, Other)
  Sender: FDA-Public Use
  Company Number: US-SANOFI-AVENTIS-2012SA075427

PATIENT
  Age: 82 Year
  Sex: Female

DRUGS (6)
  1. LANTUS SOLOSTAR [Suspect]
     Indication: DIABETES MELLITUS
     Route: 058
     Dates: start: 2007
  2. LANTUS SOLOSTAR [Suspect]
     Indication: DIABETES MELLITUS
     Route: 058
     Dates: start: 2007
  3. LANTUS SOLOSTAR [Suspect]
     Indication: DIABETES MELLITUS
     Dosage: DOSE:31 UNIT(S)
     Route: 058
     Dates: start: 2011
  4. SOLOSTAR [Suspect]
     Indication: DIABETES MELLITUS
     Dates: start: 2007
  5. SOLOSTAR [Suspect]
     Indication: DIABETES MELLITUS
     Dates: start: 2007
  6. SOLOSTAR [Suspect]
     Indication: DIABETES MELLITUS
     Dates: start: 2011

REACTIONS (2)
  - Hospitalisation [Unknown]
  - Visual impairment [Unknown]
